FAERS Safety Report 9341730 (Version 4)
Quarter: 2014Q1

REPORT INFORMATION
  Report Type: Spontaneous
  Country: US (occurrence: US)
  Receive Date: 20130611
  Receipt Date: 20140210
  Transmission Date: 20141002
  Serious: Yes (Hospitalization, Disabling)
  Sender: FDA-Public Use
  Company Number: US-BAYER-2013-071628

PATIENT
  Age: 16 Year
  Sex: Female
  Weight: 68.03 kg

DRUGS (12)
  1. YAZ [Suspect]
     Indication: ACNE
     Dosage: UNK
     Dates: start: 20101103, end: 20110727
  2. YAZ [Suspect]
     Indication: CONTRACEPTION
  3. GIANVI [Suspect]
     Indication: CONTRACEPTION
     Dosage: UNK
     Dates: start: 20101103, end: 20110727
  4. GIANVI [Suspect]
     Indication: ACNE
  5. IMITREX [Concomitant]
     Dosage: UNK
     Dates: start: 20110727
  6. ZOFRAN [Concomitant]
  7. PHENERGAN [Concomitant]
  8. TORADOL [Concomitant]
  9. MINOCYCLINE [Concomitant]
     Dosage: 100 MG, UNK
     Dates: start: 20110509, end: 20110610
  10. SPRINTEC [Concomitant]
  11. ZOMIG [Concomitant]
     Dosage: 2.5 MG, UNK
     Dates: start: 20110730
  12. DAPSONE [Concomitant]
     Indication: ACNE
     Dosage: 5 %, UNK
     Dates: start: 201002, end: 201109

REACTIONS (6)
  - Intracranial venous sinus thrombosis [None]
  - Injury [None]
  - Pain [None]
  - Anxiety [None]
  - Anhedonia [None]
  - Pain [None]
